FAERS Safety Report 7345318-8 (Version None)
Quarter: 2011Q1

REPORT INFORMATION
  Report Type: 
  Country: None (occurrence: None)
  Receive Date: 20110310
  Receipt Date: 20110307
  Transmission Date: 20110831
  Serious: Yes (Other)
  Sender: FDA-Public Use
  Company Number: US-ABBOTT-11P-163-0709593-00

PATIENT
  Sex: Female
  Weight: 61.29 kg

DRUGS (3)
  1. HUMIRA [Suspect]
     Indication: CROHN'S DISEASE
     Dates: start: 20100301, end: 20101122
  2. HUMIRA [Suspect]
  3. ASACOL [Concomitant]
     Indication: CROHN'S DISEASE

REACTIONS (7)
  - BREAST DISCOMFORT [None]
  - BREAST PAIN [None]
  - SCAR PAIN [None]
  - BREAST ENLARGEMENT [None]
  - BREAST SWELLING [None]
  - BENIGN BREAST NEOPLASM [None]
  - IMPAIRED HEALING [None]
